FAERS Safety Report 5614406-6 (Version None)
Quarter: 2008Q1

REPORT INFORMATION
  Report Type: 
  Country: None (occurrence: None)
  Receive Date: 20080111
  Receipt Date: 20070727
  Transmission Date: 20080703
  Serious: Yes (Hospitalization, Other)
  Sender: FDA-Public Use
  Company Number: HQWYE591726AUG04

PATIENT
  Age: 57 Year
  Sex: Female
  Weight: 60.84 kg

DRUGS (4)
  1. PREMPRO [Suspect]
     Indication: HORMONE REPLACEMENT THERAPY
  2. ESTRADERM [Suspect]
     Indication: HORMONE REPLACEMENT THERAPY
  3. PROMETRIUM [Suspect]
     Indication: HORMONE REPLACEMENT THERAPY
  4. TRANXENE [Concomitant]

REACTIONS (1)
  - BREAST CANCER [None]
